FAERS Safety Report 5014667-0 (Version None)
Quarter: 2006Q2

REPORT INFORMATION
  Report Type: 
  Country: None (occurrence: None)
  Receive Date: 20060531
  Receipt Date: 20051119
  Transmission Date: 20061013
  Serious: Yes (Hospitalization, Disabling)
  Sender: FDA-Public Use
  Company Number: 2005GB02271

PATIENT
  Age: 30098 Day
  Sex: Female

DRUGS (6)
  1. NOLVADEX [Suspect]
     Indication: BREAST CANCER
     Route: 048
     Dates: start: 19971029, end: 20021120
  2. ASPIRIN [Concomitant]
     Indication: PROPHYLAXIS
  3. QUININE SULFATE [Concomitant]
     Indication: MUSCLE SPASMS
  4. TEMAZEPAM [Concomitant]
     Indication: INSOMNIA
  5. VOLTAREN [Concomitant]
     Indication: ANALGESIC THERAPY
  6. ACETAMINOPHEN W/ CODEINE [Concomitant]
     Indication: ANALGESIC THERAPY

REACTIONS (8)
  - BACK PAIN [None]
  - CAUDA EQUINA SYNDROME [None]
  - FALL [None]
  - FRACTURED SACRUM [None]
  - INTERVERTEBRAL DISC PROTRUSION [None]
  - SKELETAL INJURY [None]
  - URINARY INCONTINENCE [None]
  - URINARY RETENTION [None]
